FAERS Safety Report 12389302 (Version 3)
Quarter: 2016Q2

REPORT INFORMATION
  Report Type: Spontaneous
  Country: US (occurrence: US)
  Receive Date: 20160520
  Receipt Date: 20160609
  Transmission Date: 20160815
  Serious: Yes (Death, Other)
  Sender: FDA-Public Use
  Company Number: US-ASTELLAS-2016US019599

PATIENT
  Age: 83 Year
  Sex: Male

DRUGS (1)
  1. XTANDI [Suspect]
     Active Substance: ENZALUTAMIDE
     Indication: PROSTATE CANCER
     Route: 048
     Dates: start: 20160425, end: 20160531

REACTIONS (3)
  - Generalised oedema [Unknown]
  - Anaemia [Unknown]
  - Death [Fatal]

NARRATIVE: CASE EVENT DATE: 20160531
